FAERS Safety Report 9220397 (Version 1)
Quarter: 2013Q2

REPORT INFORMATION
  Report Type: Spontaneous
  Country: KR (occurrence: KR)
  Receive Date: 20130409
  Receipt Date: 20130409
  Transmission Date: 20140414
  Serious: Yes (Death, Life-Threatening, Hospitalization)
  Sender: FDA-Public Use
  Company Number: KR-ROCHE-1206317

PATIENT
  Age: 86 Year
  Sex: Female

DRUGS (2)
  1. METALYSE [Suspect]
     Indication: ACUTE MYOCARDIAL INFARCTION
     Route: 042
  2. ISOKET [Concomitant]
     Route: 065
     Dates: start: 20040219, end: 20040219

REACTIONS (3)
  - Hypertension [Fatal]
  - Haemorrhage intracranial [Fatal]
  - Intraventricular haemorrhage [Fatal]
